FAERS Safety Report 5125169-5 (Version None)
Quarter: 2006Q4

REPORT INFORMATION
  Report Type: 
  Country: None (occurrence: None)
  Receive Date: 20061010
  Receipt Date: 20061010
  Transmission Date: 20070319
  Serious: Yes (Hospitalization)
  Sender: FDA-Public Use
  Company Number: None

PATIENT
  Age: 86 Year
  Sex: Male

DRUGS (3)
  1. GLIPIZIDE [Suspect]
     Indication: DIABETES MELLITUS NON-INSULIN-DEPENDENT
     Dosage: 10 MG QD
     Dates: start: 20030101
  2. FIORICET (GE) [Concomitant]
  3. ADALAT CL [Concomitant]

REACTIONS (2)
  - DIZZINESS [None]
  - HYPOGLYCAEMIA [None]
